FAERS Safety Report 4496312-6 (Version None)
Quarter: 2004Q4

REPORT INFORMATION
  Report Type: 
  Country: None (occurrence: None)
  Receive Date: 20041109
  Receipt Date: 20041102
  Transmission Date: 20050328
  Serious: Yes (Other)
  Sender: FDA-Public Use
  Company Number: PHBS2004US14734

PATIENT
  Age: 5 Year
  Sex: Male
  Weight: 34 kg

DRUGS (6)
  1. CYCLOSPORINE [Suspect]
     Indication: NEPHROTIC SYNDROME
     Dosage: 130 MG, BID
     Route: 048
  2. PREDNISONE [Concomitant]
  3. RANITIDINE [Concomitant]
  4. AMLODIPINE [Concomitant]
  5. FUROSEMIDE [Concomitant]
  6. TACROLIMUS [Suspect]
     Indication: NEPHROTIC SYNDROME
     Dosage: 2.5 MG, BID
     Route: 048

REACTIONS (9)
  - ACUTE LYMPHOCYTIC LEUKAEMIA [None]
  - ARTHRALGIA [None]
  - BLOOD CREATININE INCREASED [None]
  - BLOOD URIC ACID INCREASED [None]
  - HAEMOGLOBIN DECREASED [None]
  - HIRSUTISM [None]
  - NAUSEA [None]
  - PALLOR [None]
  - PYREXIA [None]
